FAERS Safety Report 12475291 (Version 1)
Quarter: 2016Q2

REPORT INFORMATION
  Report Type: Spontaneous
  Country: GB (occurrence: GB)
  Receive Date: 20160617
  Receipt Date: 20160617
  Transmission Date: 20160815
  Serious: Yes (Hospitalization, Other)
  Sender: FDA-Public Use
  Company Number: GB-GLAXOSMITHKLINE-B0359660A

PATIENT
  Age: 50 Year
  Sex: Female

DRUGS (13)
  1. DIAZEPAM. [Concomitant]
     Active Substance: DIAZEPAM
     Dosage: UNK
     Dates: start: 20030625
  2. CITALOPRAM [Concomitant]
     Active Substance: CITALOPRAM HYDROBROMIDE
     Dosage: UNK
  3. SEROXAT [Suspect]
     Active Substance: PAROXETINE HYDROCHLORIDE
     Dosage: 30 MG, UNK
     Route: 065
  4. PAROXETINE. [Suspect]
     Active Substance: PAROXETINE
     Indication: PRODUCT USED FOR UNKNOWN INDICATION
     Dosage: 20 MG, BID
     Route: 065
     Dates: start: 20021122, end: 20021216
  5. LORAZEPAM. [Concomitant]
     Active Substance: LORAZEPAM
     Dosage: UNK
     Dates: start: 20020727
  6. SEROXAT [Suspect]
     Active Substance: PAROXETINE HYDROCHLORIDE
     Indication: PRODUCT USED FOR UNKNOWN INDICATION
     Dosage: UNK
     Route: 065
     Dates: start: 19990507
  7. SEROXAT [Suspect]
     Active Substance: PAROXETINE HYDROCHLORIDE
     Indication: PRODUCT USED FOR UNKNOWN INDICATION
     Dosage: 20 MG, UNK
     Route: 065
     Dates: start: 20000414, end: 20020921
  8. CHLORDIAZEPOXIDE. [Concomitant]
     Active Substance: CHLORDIAZEPOXIDE
     Dosage: UNK
     Dates: start: 20020508
  9. PROZAC [Concomitant]
     Active Substance: FLUOXETINE HYDROCHLORIDE
     Dosage: UNK
     Dates: start: 19980319
  10. PAROXETINE. [Suspect]
     Active Substance: PAROXETINE
     Indication: PRODUCT USED FOR UNKNOWN INDICATION
     Dosage: 20 MG, UNK
     Route: 065
     Dates: start: 20000720, end: 20030211
  11. PROPRANOLOL [Concomitant]
     Active Substance: PROPRANOLOL\PROPRANOLOL HYDROCHLORIDE
     Dosage: UNK
  12. PAROXETINE. [Suspect]
     Active Substance: PAROXETINE
     Indication: PRODUCT USED FOR UNKNOWN INDICATION
     Dosage: 10MG/5ML
     Route: 065
     Dates: start: 20030211, end: 20030224
  13. ST JOHNS WORT [Concomitant]
     Active Substance: ST. JOHN^S WORT
     Dosage: UNK
     Dates: start: 200206

REACTIONS (37)
  - Confusional state [Unknown]
  - Morbid thoughts [Unknown]
  - Dry mouth [Unknown]
  - Feeling abnormal [Unknown]
  - Derealisation [Unknown]
  - Electric shock [Unknown]
  - Anxiety [Unknown]
  - Intentional self-injury [Unknown]
  - Insomnia [Unknown]
  - Hyperhidrosis [Unknown]
  - Paraesthesia [Unknown]
  - Fatigue [Unknown]
  - Memory impairment [Unknown]
  - Overdose [Unknown]
  - Emotional disorder [Unknown]
  - Vision blurred [Unknown]
  - Suicidal behaviour [Unknown]
  - Drug withdrawal syndrome [Unknown]
  - Palpitations [Unknown]
  - Muscle rigidity [Unknown]
  - Abnormal behaviour [Unknown]
  - Hyperacusis [Unknown]
  - Hypervigilance [Unknown]
  - Disturbance in attention [Unknown]
  - Respiratory rate increased [Unknown]
  - Influenza [Unknown]
  - Agitation [Unknown]
  - Tremor [Unknown]
  - Panic attack [Unknown]
  - Dizziness [Unknown]
  - Nightmare [Unknown]
  - Lethargy [Unknown]
  - Vomiting [Unknown]
  - Hyperventilation [Unknown]
  - Panic reaction [Unknown]
  - Sensory disturbance [Unknown]
  - Tinnitus [Unknown]

NARRATIVE: CASE EVENT DATE: 20020508
